FAERS Safety Report 8719737 (Version 2)
Quarter: 2013Q3

REPORT INFORMATION
  Report Type: Report from Study
  Country: BR (occurrence: BR)
  Receive Date: 20120813
  Receipt Date: 20130915
  Transmission Date: 20140515
  Serious: Yes (Hospitalization, Other)
  Sender: FDA-Public Use
  Company Number: PHHY2012BR069118

PATIENT
  Age: 75 Year
  Sex: Female
  Weight: 52.1 kg

DRUGS (9)
  1. EXELON PATCH [Suspect]
     Indication: MEMORY IMPAIRMENT
     Dosage: 4.6 MG, QD
     Route: 062
     Dates: start: 201012
  2. EXELON PATCH [Suspect]
     Dosage: 9.5 MG, QD
     Route: 062
  3. EXELON [Suspect]
     Indication: MEMORY IMPAIRMENT
     Dosage: 3 MG, DAILY
     Route: 048
  4. EXELON [Suspect]
     Dosage: 6 MG, DAILY
     Route: 048
  5. EXELON [Suspect]
     Dosage: 2 DF (6MG), THE SAME DAY
     Route: 048
     Dates: start: 201203
  6. EXELON [Suspect]
     Dosage: 3 MG, DAILY
     Route: 048
  7. ABLOK [Concomitant]
     Indication: CARDIAC DISORDER
     Dosage: 50 MG, DAILY
     Route: 048
  8. CLORANA [Concomitant]
     Indication: HYPERTENSION
     Dosage: 0.5 DF (20MG) DAILY
     Route: 048
  9. RENITEC [Concomitant]
     Indication: HYPERTENSION
     Dosage: 0.5 DF (20MG) QD
     Route: 048

REACTIONS (10)
  - Neurotoxicity [Recovered/Resolved]
  - Disorientation [Recovered/Resolved]
  - Speech disorder [Recovered/Resolved]
  - Hypoaesthesia [Recovered/Resolved]
  - Tachycardia [Recovered/Resolved]
  - Dizziness [Recovered/Resolved]
  - Vomiting [Recovered/Resolved]
  - Memory impairment [Not Recovered/Not Resolved]
  - Hypersensitivity [Unknown]
  - Extra dose administered [Recovered/Resolved]
